FAERS Safety Report 19625587 (Version 1)
Quarter: 2021Q3

REPORT INFORMATION
  Report Type: Spontaneous
  Country: US (occurrence: US)
  Receive Date: 20210729
  Receipt Date: 20210729
  Transmission Date: 20211014
  Serious: Yes (Other)
  Sender: FDA-Public Use
  Company Number: US-SA-2021SA244626

PATIENT
  Age: 36 Year
  Sex: Female

DRUGS (2)
  1. LEMTRADA [Suspect]
     Active Substance: ALEMTUZUMAB
     Indication: MULTIPLE SCLEROSIS
     Dosage: DRUG STRUCTURE DOSAGE : 12 MG DRUG INTERVAL DOSAGE : DAILY TIME 3 DAYS
     Dates: start: 2016, end: 2016
  2. LEMTRADA [Suspect]
     Active Substance: ALEMTUZUMAB
     Dosage: DRUG STRUCTURE DOSAGE : 12 MG DRUG INTERVAL DOSAGE : DAILY TIME 3 DAYS
     Dates: start: 201704, end: 2017

REACTIONS (8)
  - Glycosylated haemoglobin increased [Unknown]
  - Metabolic disorder [Unknown]
  - Abdominal discomfort [Unknown]
  - Skin disorder [Unknown]
  - Hepatic steatosis [Unknown]
  - Type 2 diabetes mellitus [Unknown]
  - Autoimmune disorder [Unknown]
  - Weight increased [Unknown]

NARRATIVE: CASE EVENT DATE: 2020
